FAERS Safety Report 5941135-1 (Version None)
Quarter: 2008Q4

REPORT INFORMATION
  Report Type: 
  Country: None (occurrence: None)
  Receive Date: 20081104
  Receipt Date: 20080325
  Transmission Date: 20090506
  Serious: Yes (Hospitalization)
  Sender: FDA-Public Use
  Company Number: FR-PFIZER INC-2008090800

PATIENT
  Sex: Male

DRUGS (16)
  1. NEURONTIN [Suspect]
     Dates: start: 20070814, end: 20070816
  2. MORPHINE [Suspect]
     Dates: start: 20070814, end: 20070816
  3. ATROPINE SULFATE [Suspect]
     Dates: start: 20070814, end: 20070814
  4. SUFENTA PRESERVATIVE FREE [Suspect]
     Dates: start: 20070814, end: 20070814
  5. PROPOFOL ^FRESENIUS^ [Suspect]
     Dates: start: 20070814, end: 20070814
  6. KEFANDOL [Suspect]
     Dates: start: 20070814, end: 20070814
  7. ACUPAN [Concomitant]
     Dates: start: 20070814, end: 20070821
  8. KARDEGIC [Concomitant]
  9. DETENSIEL [Concomitant]
  10. CORDARONE [Concomitant]
  11. AMLOD [Concomitant]
  12. CORVASAL [Concomitant]
  13. ALLOPURINOL [Concomitant]
  14. ELISOR [Concomitant]
  15. ATARAX [Concomitant]
  16. TAREG [Concomitant]

REACTIONS (1)
  - LIVER DISORDER [None]
